FAERS Safety Report 8107615-8 (Version None)
Quarter: 2012Q1

REPORT INFORMATION
  Report Type: 
  Country: None (occurrence: None)
  Receive Date: 20120202
  Receipt Date: 20120130
  Transmission Date: 20120608
  Serious: No
  Sender: FDA-Public Use
  Company Number: US-PFIZER INC-2012025249

PATIENT
  Sex: Male
  Weight: 96.15 kg

DRUGS (5)
  1. LIPITOR [Suspect]
     Dosage: UNK
     Route: 048
  2. LIPITOR [Suspect]
     Indication: BLOOD CHOLESTEROL INCREASED
     Dosage: 10 MG, 1X/DAY
     Route: 048
     Dates: start: 20060101
  3. COUMADIN [Concomitant]
     Dosage: UNK
  4. LYRICA [Suspect]
     Dosage: UNK
     Route: 048
  5. LYRICA [Suspect]
     Indication: DIABETIC NEUROPATHY
     Dosage: 50 MG, 2X/DAY
     Route: 048
     Dates: start: 20111001

REACTIONS (1)
  - BLOOD GLUCOSE INCREASED [None]
